FAERS Safety Report 16097460 (Version 3)
Quarter: 2019Q2

REPORT INFORMATION
  Report Type: Spontaneous
  Country: US (occurrence: US)
  Receive Date: 20190320
  Receipt Date: 20190405
  Transmission Date: 20190711
  Serious: Yes (Other)
  Sender: FDA-Public Use
  Company Number: US-ASTRAZENECA-2019SE34898

PATIENT
  Age: 934 Month
  Sex: Female
  Weight: 92.5 kg

DRUGS (2)
  1. BYDUREON BCISE [Suspect]
     Active Substance: EXENATIDE
     Indication: TYPE 2 DIABETES MELLITUS
     Dosage: 2 MG/0.85 ML ONCE A WEEK,
     Route: 058
     Dates: start: 20190204
  2. LANTUS [Concomitant]
     Active Substance: INSULIN GLARGINE
     Dates: start: 20190212

REACTIONS (11)
  - Injection site erythema [Not Recovered/Not Resolved]
  - Sinusitis [Not Recovered/Not Resolved]
  - Device leakage [Unknown]
  - Product dose omission [Unknown]
  - Injection site pain [Recovered/Resolved]
  - Injection site bruising [Recovered/Resolved]
  - Fungal infection [Not Recovered/Not Resolved]
  - Neoplasm malignant [Unknown]
  - Injection site haemorrhage [Recovered/Resolved]
  - Device malfunction [Unknown]
  - Injection site extravasation [Recovered/Resolved]

NARRATIVE: CASE EVENT DATE: 201902
